FAERS Safety Report 5124275-9 (Version None)
Quarter: 2006Q3

REPORT INFORMATION
  Report Type: 
  Country: None (occurrence: None)
  Receive Date: 20060816
  Receipt Date: 20060518
  Transmission Date: 20061208
  Serious: No
  Sender: FDA-Public Use
  Company Number: US200605003915

PATIENT
  Age: 71 Year
  Sex: Male

DRUGS (4)
  1. CIALIS [Suspect]
     Indication: ERECTILE DYSFUNCTION
     Dosage: 20 MG/KG
     Dates: start: 20060516
  2. FLOMAX [Concomitant]
  3. PRAVASTATIN [Concomitant]
  4. PHENTERMINE [Concomitant]

REACTIONS (1)
  - DRUG INEFFECTIVE [None]
